FAERS Safety Report 10902309 (Version 1)
Quarter: 2015Q1

REPORT INFORMATION
  Report Type: Spontaneous
  Country: CN (occurrence: CN)
  Receive Date: 20150310
  Receipt Date: 20150310
  Transmission Date: 20150721
  Serious: No
  Sender: FDA-Public Use
  Company Number: CN-ELI_LILLY_AND_COMPANY-CN201502009464

PATIENT
  Age: 32 Year
  Sex: Male

DRUGS (3)
  1. CIALIS [Suspect]
     Active Substance: TADALAFIL
     Dosage: 5 MG, PRN
     Route: 048
  2. CIALIS [Suspect]
     Active Substance: TADALAFIL
     Indication: ERECTILE DYSFUNCTION
     Dosage: 20 MG, PRN
     Route: 048
     Dates: start: 2013
  3. CIALIS [Suspect]
     Active Substance: TADALAFIL
     Dosage: 1 MG, UNKNOWN
     Route: 048

REACTIONS (2)
  - Dizziness [Unknown]
  - Vision blurred [Unknown]
